FAERS Safety Report 7488128-3 (Version None)
Quarter: 2011Q2

REPORT INFORMATION
  Report Type: 
  Country: None (occurrence: None)
  Receive Date: 20110511
  Receipt Date: 20110426
  Transmission Date: 20111010
  Serious: Yes (Hospitalization)
  Sender: FDA-Public Use
  Company Number: 015495

PATIENT
  Sex: Female
  Weight: 47.8 kg

DRUGS (19)
  1. ISONIAZID [Concomitant]
  2. AURANOFIN [Concomitant]
  3. FAMOTIDINE [Concomitant]
  4. OLOPATARDINE HYDROCHLORIDE [Concomitant]
  5. PREDNISOLONE [Concomitant]
  6. VIDARABINE [Concomitant]
  7. BUCILLAMINE [Concomitant]
  8. CIMZIA [Suspect]
     Indication: RHEUMATOID ARTHRITIS
     Dosage: 200 MG 1X2 WEEKS SUBCUTANEOUS, 200 MG 1X/2 WEEKS SUBCUTANEOUS
     Route: 058
     Dates: start: 20091210, end: 20100707
  9. ATORVASTATIN CALCIUM [Concomitant]
  10. SENNOSIDE /00571902/ [Concomitant]
  11. AZULENE SODIUM SULFONATE [Concomitant]
  12. AMPHOTERICIN B [Concomitant]
  13. SULFASALAZINE [Concomitant]
  14. LOXOPROFEN SODIUM [Concomitant]
  15. LIRANAFTATE [Concomitant]
  16. DIFLUCORTOLONE VALERATE [Concomitant]
  17. TERBINAFINE HYDROCHLORIDE [Concomitant]
  18. SULFAMETHOXAZOLE AND TRIMETHOPRIM [Concomitant]
  19. THEOPHYLLINE [Concomitant]

REACTIONS (8)
  - BLOOD CHOLESTEROL INCREASED [None]
  - NEOPLASM [None]
  - DIZZINESS [None]
  - GAIT DISTURBANCE [None]
  - DERMAL CYST [None]
  - VOMITING [None]
  - INFECTION [None]
  - NAUSEA [None]
